FAERS Safety Report 13113923 (Version 5)
Quarter: 2020Q2

REPORT INFORMATION
  Report Type: Report from Study
  Country: AU (occurrence: AU)
  Receive Date: 20170113
  Receipt Date: 20200515
  Transmission Date: 20200713
  Serious: No
  Sender: FDA-Public Use
  Company Number: AU-JNJFOC-20170108834

PATIENT
  Sex: Male

DRUGS (1)
  1. STELARA [Suspect]
     Active Substance: USTEKINUMAB
     Indication: PSORIASIS
     Route: 058
     Dates: start: 20161118

REACTIONS (5)
  - Irritability [Unknown]
  - Eye swelling [Unknown]
  - Anxiety [Unknown]
  - Psoriasis [Unknown]
  - Drug ineffective [Unknown]
